FAERS Safety Report 4610204-0 (Version None)
Quarter: 2005Q1

REPORT INFORMATION
  Report Type: 
  Country: None (occurrence: None)
  Receive Date: 20050316
  Receipt Date: 20050121
  Transmission Date: 20050727
  Serious: Yes (Other)
  Sender: FDA-Public Use
  Company Number: US-BRISTOL-MYERS SQUIBB COMPANY-12834388

PATIENT
  Age: 61 Year
  Sex: Male

DRUGS (2)
  1. ERBITUX [Suspect]
     Indication: NEOPLASM MALIGNANT
     Dosage: RECEIVED 1/2 OF FIRST TREATMENT
     Route: 042
     Dates: start: 20050120
  2. RADIATION THERAPY [Concomitant]
     Indication: NEOPLASM MALIGNANT

REACTIONS (3)
  - BLOOD PRESSURE INCREASED [None]
  - CYANOSIS [None]
  - DYSPNOEA [None]
